FAERS Safety Report 9016253 (Version 1)
Quarter: 2013Q1

REPORT INFORMATION
  Report Type: Spontaneous
  Country: CA (occurrence: CA)
  Receive Date: 20130116
  Receipt Date: 20130116
  Transmission Date: 20140127
  Serious: Yes (Life-Threatening, Hospitalization)
  Sender: FDA-Public Use
  Company Number: CA-B.I. PHARMACEUTICALS,INC./RIDGEFIELD-2013-CN-00061CN

PATIENT
  Age: 89 Year
  Sex: Female
  Weight: 76 kg

DRUGS (11)
  1. PRADAX [Suspect]
     Dosage: 220 MG
     Route: 048
  2. ADALAT XL [Concomitant]
  3. ALTACE [Concomitant]
  4. BISOPROLOL [Concomitant]
  5. CALCIUM [Concomitant]
  6. DIABETA [Concomitant]
  7. GLUCOPHAGE [Concomitant]
  8. NITRO-DUR [Concomitant]
  9. VITALUX AREDS [Concomitant]
  10. VITAMIN D [Concomitant]
  11. ZOCOR [Concomitant]

REACTIONS (5)
  - Acute coronary syndrome [Unknown]
  - Acute pulmonary oedema [Unknown]
  - Cardiac failure [Unknown]
  - Ejection fraction decreased [Unknown]
  - Troponin increased [Unknown]
